FAERS Safety Report 4481265-7 (Version None)
Quarter: 2004Q4

REPORT INFORMATION
  Report Type: 
  Country: None (occurrence: None)
  Receive Date: 20040923
  Receipt Date: 20040526
  Transmission Date: 20050328
  Serious: No
  Sender: FDA-Public Use
  Company Number: USA030434517

PATIENT
  Age: 78 Year
  Sex: Female

DRUGS (10)
  1. FORTEO [Suspect]
     Indication: OSTEOPOROSIS
     Dates: start: 20021201
  2. VIOXX [Concomitant]
  3. SYNTHROID [Concomitant]
  4. NEXIUM [Concomitant]
  5. NASONEX [Concomitant]
  6. DIOVAN [Concomitant]
  7. DICYCLOMINE (DICYCLOVERINE) [Concomitant]
  8. AMOXICILLIN [Concomitant]
  9. ALLEGRA [Concomitant]
  10. ADVAIR [Concomitant]

REACTIONS (3)
  - BLOOD PRESSURE INCREASED [None]
  - DIZZINESS [None]
  - VERTIGO POSITIONAL [None]
